FAERS Safety Report 24717135 (Version 2)
Quarter: 2024Q4

REPORT INFORMATION
  Report Type: Report from Study
  Country: FI (occurrence: FI)
  Receive Date: 20241210
  Receipt Date: 20241213
  Transmission Date: 20250115
  Serious: Yes (Hospitalization, Other)
  Sender: MYLAN
  Company Number: FI-MYLANLABS-2024M1110218

PATIENT
  Sex: Male

DRUGS (1)
  1. CLOZAPINE [Suspect]
     Active Substance: CLOZAPINE
     Indication: Schizophrenia
     Dosage: 200 MILLIGRAM (50 MILLIGRAMS PLUS 150 MILLIGRAMS)
     Route: 065

REACTIONS (9)
  - Renal atrophy [Unknown]
  - Cardiac failure [Unknown]
  - Constipation [Not Recovered/Not Resolved]
  - Renal failure [Unknown]
  - Urinary retention [Unknown]
  - Abdominal distension [Unknown]
  - Blood creatinine increased [Unknown]
  - Mean cell volume decreased [Unknown]
  - Blood sodium decreased [Unknown]
